FAERS Safety Report 8972919 (Version 1)
Quarter: 2012Q4

REPORT INFORMATION
  Report Type: 
  Country: US (occurrence: US)
  Receive Date: 20121218
  Receipt Date: 20121218
  Transmission Date: 20130627
  Serious: Yes (Hospitalization)
  Sender: FDA-Public Use
  Company Number: US-BRISTOL-MYERS SQUIBB COMPANY-16962557

PATIENT
  Sex: Female
  Weight: 58.96 kg

DRUGS (2)
  1. ABILIFY TABS 10 MG [Suspect]
     Dosage: 1DF:1tab
Dosage for two weeks.
     Dates: start: 20120812
  2. LEVOXYL [Concomitant]

REACTIONS (4)
  - Asthenia [Unknown]
  - Dysphagia [Unknown]
  - Gait disturbance [Unknown]
  - Atrial fibrillation [Unknown]
